FAERS Safety Report 9293676 (Version 1)
Quarter: 2013Q2

REPORT INFORMATION
  Report Type: Spontaneous
  Country: US (occurrence: US)
  Receive Date: 20130516
  Receipt Date: 20130516
  Transmission Date: 20140414
  Serious: No
  Sender: FDA-Public Use
  Company Number: US-ASTRAZENECA-2013SE32498

PATIENT
  Age: 70 Year
  Sex: Male

DRUGS (3)
  1. BRILINTA [Suspect]
     Route: 048
  2. ASA [Concomitant]
  3. ANGIOMAX [Concomitant]

REACTIONS (1)
  - Flushing [Unknown]
